FAERS Safety Report 5194495-6 (Version None)
Quarter: 2006Q4

REPORT INFORMATION
  Report Type: 
  Country: None (occurrence: None)
  Receive Date: 20061226
  Receipt Date: 20061207
  Transmission Date: 20070319
  Serious: Yes (Hospitalization, Disabling)
  Sender: FDA-Public Use
  Company Number: NALJP-06-0671

PATIENT
  Age: 42 Year
  Sex: Female

DRUGS (42)
  1. NAROPIN [Suspect]
     Indication: ANAESTHESIA
     Dosage: SEE IMAGE
     Route: 008
     Dates: start: 20041029, end: 20041029
  2. NAROPIN [Suspect]
     Indication: EPIDURAL ANAESTHESIA
     Dosage: SEE IMAGE
     Route: 008
     Dates: start: 20041029, end: 20041029
  3. NAROPIN [Suspect]
     Indication: GENERAL ANAESTHESIA
     Dosage: SEE IMAGE
     Route: 008
     Dates: start: 20041029, end: 20041029
  4. NAROPIN [Suspect]
     Indication: INFECTION PROPHYLAXIS
     Dosage: SEE IMAGE
     Route: 008
     Dates: start: 20041029, end: 20041029
  5. NAROPIN [Suspect]
     Indication: PAIN
     Dosage: SEE IMAGE
     Route: 008
     Dates: start: 20041029, end: 20041029
  6. NAROPIN [Suspect]
     Indication: ANAESTHESIA
     Dosage: SEE IMAGE
     Route: 008
     Dates: start: 20041029, end: 20041029
  7. NAROPIN [Suspect]
     Indication: EPIDURAL ANAESTHESIA
     Dosage: SEE IMAGE
     Route: 008
     Dates: start: 20041029, end: 20041029
  8. NAROPIN [Suspect]
     Indication: GENERAL ANAESTHESIA
     Dosage: SEE IMAGE
     Route: 008
     Dates: start: 20041029, end: 20041029
  9. NAROPIN [Suspect]
     Indication: INFECTION PROPHYLAXIS
     Dosage: SEE IMAGE
     Route: 008
     Dates: start: 20041029, end: 20041029
  10. NAROPIN [Suspect]
     Indication: PAIN
     Dosage: SEE IMAGE
     Route: 008
     Dates: start: 20041029, end: 20041029
  11. NAROPIN [Suspect]
     Indication: ANAESTHESIA
     Dosage: SEE IMAGE
     Route: 008
     Dates: start: 20041030
  12. NAROPIN [Suspect]
     Indication: EPIDURAL ANAESTHESIA
     Dosage: SEE IMAGE
     Route: 008
     Dates: start: 20041030
  13. NAROPIN [Suspect]
     Indication: GENERAL ANAESTHESIA
     Dosage: SEE IMAGE
     Route: 008
     Dates: start: 20041030
  14. NAROPIN [Suspect]
     Indication: INFECTION PROPHYLAXIS
     Dosage: SEE IMAGE
     Route: 008
     Dates: start: 20041030
  15. NAROPIN [Suspect]
     Indication: PAIN
     Dosage: SEE IMAGE
     Route: 008
     Dates: start: 20041030
  16. NAROPIN [Suspect]
     Indication: ANAESTHESIA
     Dosage: SEE IMAGE
     Route: 008
     Dates: start: 20061030
  17. NAROPIN [Suspect]
     Indication: EPIDURAL ANAESTHESIA
     Dosage: SEE IMAGE
     Route: 008
     Dates: start: 20061030
  18. NAROPIN [Suspect]
     Indication: GENERAL ANAESTHESIA
     Dosage: SEE IMAGE
     Route: 008
     Dates: start: 20061030
  19. NAROPIN [Suspect]
     Indication: INFECTION PROPHYLAXIS
     Dosage: SEE IMAGE
     Route: 008
     Dates: start: 20061030
  20. NAROPIN [Suspect]
     Indication: PAIN
     Dosage: SEE IMAGE
     Route: 008
     Dates: start: 20061030
  21. MEPIVACAINE HCL [Suspect]
     Indication: ANAESTHESIA
     Dosage: TEST DOSE VIA EPIDURAL (3 ML), EPIDURAL
     Route: 008
     Dates: start: 20061029, end: 20061029
  22. MEPIVACAINE HCL [Suspect]
     Indication: EPIDURAL ANAESTHESIA
     Dosage: TEST DOSE VIA EPIDURAL (3 ML), EPIDURAL
     Route: 008
     Dates: start: 20061029, end: 20061029
  23. MEPIVACAINE HCL [Suspect]
     Indication: GENERAL ANAESTHESIA
     Dosage: TEST DOSE VIA EPIDURAL (3 ML), EPIDURAL
     Route: 008
     Dates: start: 20061029, end: 20061029
  24. MEPIVACAINE HCL [Suspect]
     Indication: INFECTION PROPHYLAXIS
     Dosage: TEST DOSE VIA EPIDURAL (3 ML), EPIDURAL
     Route: 008
     Dates: start: 20061029, end: 20061029
  25. MEPIVACAINE HCL [Suspect]
     Indication: PAIN
     Dosage: TEST DOSE VIA EPIDURAL (3 ML), EPIDURAL
     Route: 008
     Dates: start: 20061029, end: 20061029
  26. MEPIVACAINE HCL [Suspect]
     Indication: ANAESTHESIA
     Dosage: TEST DOSE VIA EPIDURAL (3 ML), EPIDURAL
     Route: 008
     Dates: start: 20061029, end: 20061029
  27. MEPIVACAINE HCL [Suspect]
     Indication: EPIDURAL ANAESTHESIA
     Dosage: TEST DOSE VIA EPIDURAL (3 ML), EPIDURAL
     Route: 008
     Dates: start: 20061029, end: 20061029
  28. MEPIVACAINE HCL [Suspect]
     Indication: GENERAL ANAESTHESIA
     Dosage: TEST DOSE VIA EPIDURAL (3 ML), EPIDURAL
     Route: 008
     Dates: start: 20061029, end: 20061029
  29. MEPIVACAINE HCL [Suspect]
     Indication: INFECTION PROPHYLAXIS
     Dosage: TEST DOSE VIA EPIDURAL (3 ML), EPIDURAL
     Route: 008
     Dates: start: 20061029, end: 20061029
  30. MEPIVACAINE HCL [Suspect]
     Indication: PAIN
     Dosage: TEST DOSE VIA EPIDURAL (3 ML), EPIDURAL
     Route: 008
     Dates: start: 20061029, end: 20061029
  31. MIOBLOCK (PANCURONIUM BROMIDE) [Concomitant]
  32. MORPHINE [Concomitant]
  33. ISOFLURANE [Concomitant]
  34. DIPRIVAN [Concomitant]
  35. SUCCIN (SUXAMETHONIUM CHLORIDE) [Concomitant]
  36. VECURONIUM BROMIDE [Concomitant]
  37. EPHEDRIN (EPHEDRINE HYDROCHLORIDE) [Concomitant]
  38. ATROPINE SULFATE [Concomitant]
  39. VAGOSTIGMIN (NEOSTIGMINE METILSUFATE) [Concomitant]
  40. PANSPORIN (CEFOTAM HYDROCHLORIDE) [Concomitant]
  41. LAUGHING GAS (NITROUS OXIDE) [Concomitant]
  42. OXYGEN (OXYGEN) [Concomitant]

REACTIONS (8)
  - ABDOMINAL PAIN LOWER [None]
  - DRUG EFFECT PROLONGED [None]
  - HYPOAESTHESIA [None]
  - MONOPLEGIA [None]
  - NERVE INJURY [None]
  - NERVOUS SYSTEM DISORDER [None]
  - PARALYSIS [None]
  - PYREXIA [None]
